FAERS Safety Report 19943835 (Version 25)
Quarter: 2024Q4

REPORT INFORMATION
  Report Type: Spontaneous
  Country: CA (occurrence: CA)
  Receive Date: 20211012
  Receipt Date: 20241204
  Transmission Date: 20250115
  Serious: Yes (Other)
  Sender: CELLTRION
  Company Number: CA-CELLTRION INC.-2021CA011178

PATIENT

DRUGS (20)
  1. INFLECTRA [Suspect]
     Active Substance: INFLIXIMAB-DYYB
     Indication: Colitis ulcerative
     Dosage: 5 MG/KG 1 DF (FIRST DOSE IN HOSPITAL)
     Route: 042
     Dates: start: 20210622, end: 20210622
  2. INFLECTRA [Suspect]
     Active Substance: INFLIXIMAB-DYYB
     Dosage: 300 MG, 2, 6 THEN EVERY 8 WEEKS (PRESCRIBED AS 285 MG)
     Route: 042
     Dates: start: 20210710, end: 20210807
  3. INFLECTRA [Suspect]
     Active Substance: INFLIXIMAB-DYYB
     Dosage: 285 MG, 2, 6 THEN EVERY 8 WEEKS
     Route: 042
     Dates: start: 20210807
  4. INFLECTRA [Suspect]
     Active Substance: INFLIXIMAB-DYYB
     Dosage: 700 MG, AFTER 12 WEEKS 6 DAYS, RESCUE DOSE (PRESCRIBED 10 MG/KG)
     Route: 042
     Dates: start: 20211105, end: 20211105
  5. INFLECTRA [Suspect]
     Active Substance: INFLIXIMAB-DYYB
     Dosage: 700 MG, AFTER 12 WEEKS 6 DAYS, RESCUE DOSE (PRESCRIBED 10 MG/KG)
     Route: 042
     Dates: start: 20211105, end: 20211105
  6. INFLECTRA [Suspect]
     Active Substance: INFLIXIMAB-DYYB
     Dosage: 700 MG, AFTER 12 WEEKS 6 DAYS, RESCUE DOSE (PRESCRIBED 10 MG/KG)
     Route: 042
     Dates: start: 20211105, end: 20211105
  7. INFLECTRA [Suspect]
     Active Substance: INFLIXIMAB-DYYB
     Dosage: 10 MG/KG, RELOAD AT WEEK Q 0, 2, 6 WEEK
     Route: 042
     Dates: start: 20211211, end: 20211211
  8. INFLECTRA [Suspect]
     Active Substance: INFLIXIMAB-DYYB
     Dosage: 700 MG, AT  Q 2,6 WEEK, THEN EVERY 6 WEEKS
     Route: 042
     Dates: start: 20211223
  9. INFLECTRA [Suspect]
     Active Substance: INFLIXIMAB-DYYB
     Dosage: 700 MG, Q 2,6 WEEK, THEN EVERY 6 WEEKS
     Route: 042
     Dates: start: 20231006
  10. INFLECTRA [Suspect]
     Active Substance: INFLIXIMAB-DYYB
     Dosage: 700 MG, Q 2,6 WEEK, THEN EVERY 6 WEEKS
     Route: 042
     Dates: start: 20231121
  11. INFLECTRA [Suspect]
     Active Substance: INFLIXIMAB-DYYB
     Dosage: 700 MG, AFTER 6 WEEKS AND 2 DAYS (Q 2,6 WEEK, THEN EVERY 6 WEEKS)
     Route: 042
     Dates: start: 20240104
  12. INFLECTRA [Suspect]
     Active Substance: INFLIXIMAB-DYYB
     Dosage: 700 MG, AFTER 7 WEEKS (AT Q 2,6 WEEK, THEN EVERY 6 WEEKS)
     Route: 042
     Dates: start: 20240222
  13. INFLECTRA [Suspect]
     Active Substance: INFLIXIMAB-DYYB
     Dosage: 700 MG, AFTER 7 WEEKS (AT Q 2,6 WEEK, THEN EVERY 6 WEEKS)
     Route: 042
     Dates: start: 20240316
  14. INFLECTRA [Suspect]
     Active Substance: INFLIXIMAB-DYYB
     Dosage: 700 MG, Q 2,6 WEEK, THEN EVERY 6 WEEKS
     Route: 042
     Dates: start: 20240514
  15. INFLECTRA [Suspect]
     Active Substance: INFLIXIMAB-DYYB
     Dosage: 700 MG, AFTER 6 WEEKS AND 1 DAY,(Q 2,6 WEEK, THEN EVERY 6 WEEKS)
     Route: 042
     Dates: start: 20240626
  16. INFLECTRA [Suspect]
     Active Substance: INFLIXIMAB-DYYB
     Dosage: 700 MG, Q 2,6 WEEK, THEN EVERY 6 WEEKS
     Route: 042
     Dates: start: 20240808
  17. INFLECTRA [Suspect]
     Active Substance: INFLIXIMAB-DYYB
     Dosage: 700 MG
     Route: 042
     Dates: start: 20240919
  18. ENTYVIO [Concomitant]
     Active Substance: VEDOLIZUMAB
     Dosage: 1 DF, DOSAGE INFO: NOT PROVIDED. DISCONTINUED
     Route: 065
     Dates: start: 20211002
  19. ENTYVIO [Concomitant]
     Active Substance: VEDOLIZUMAB
     Dosage: UNK
     Route: 065
  20. ENTYVIO [Concomitant]
     Active Substance: VEDOLIZUMAB
     Dosage: UNK

REACTIONS (25)
  - Condition aggravated [Not Recovered/Not Resolved]
  - Pneumonia [Recovering/Resolving]
  - Rib fracture [Recovering/Resolving]
  - Therapy non-responder [Unknown]
  - COVID-19 [Recovering/Resolving]
  - Cough [Unknown]
  - Lethargy [Not Recovered/Not Resolved]
  - Asthenia [Not Recovered/Not Resolved]
  - Stress [Unknown]
  - Illness [Unknown]
  - Gastrointestinal disorder [Unknown]
  - Poor venous access [Unknown]
  - Pruritus [Recovered/Resolved]
  - Urinary tract infection [Recovered/Resolved]
  - Weight decreased [Recovering/Resolving]
  - Pyrexia [Unknown]
  - Rhinitis [Unknown]
  - Off label use [Unknown]
  - Off label use [Unknown]
  - Off label use [Unknown]
  - Product use issue [Unknown]
  - Off label use [Unknown]
  - Intentional product use issue [Unknown]
  - Incorrect dose administered [Unknown]
  - Inappropriate schedule of product administration [Unknown]

NARRATIVE: CASE EVENT DATE: 20210101
